FAERS Safety Report 13357638 (Version 2)
Quarter: 2017Q2

REPORT INFORMATION
  Report Type: Spontaneous
  Country: US (occurrence: US)
  Receive Date: 20170322
  Receipt Date: 20170419
  Transmission Date: 20170830
  Serious: No
  Sender: FDA-Public Use
  Company Number: ALCN2017US002112

PATIENT
  Sex: Female

DRUGS (1)
  1. SYSTANE BALANCE [Suspect]
     Active Substance: PROPYLENE GLYCOL
     Indication: PRODUCT USED FOR UNKNOWN INDICATION
     Route: 047

REACTIONS (7)
  - Feeling abnormal [Unknown]
  - Dacryostenosis acquired [Recovered/Resolved]
  - Dry eye [Unknown]
  - Ocular hyperaemia [Unknown]
  - Instillation site exfoliation [Unknown]
  - Medication residue present [Unknown]
  - Product quality issue [Unknown]
